FAERS Safety Report 9699191 (Version 2)
Quarter: 2015Q3

REPORT INFORMATION
  Report Type: Spontaneous
  Country: US (occurrence: US)
  Receive Date: 20131120
  Receipt Date: 20150803
  Transmission Date: 20151125
  Serious: Yes (Other)
  Sender: FDA-Public Use
  Company Number: US-GILEAD-2008-0015090

PATIENT
  Age: 69 Year
  Sex: Male

DRUGS (10)
  1. ASA [Concomitant]
     Active Substance: ASPIRIN
     Route: 048
  2. CENTRUM SILVER [Concomitant]
     Active Substance: VITAMINS
     Route: 048
  3. SYNTHROID [Concomitant]
     Active Substance: LEVOTHYROXINE SODIUM
     Route: 048
  4. FOSAMAX [Concomitant]
     Active Substance: ALENDRONATE SODIUM
     Route: 048
  5. CALCIUM CITRATE/ERGOCALCIFEROL [Concomitant]
     Route: 048
  6. LOVASTATIN. [Concomitant]
     Active Substance: LOVASTATIN
     Route: 048
  7. FISH OIL [Concomitant]
     Active Substance: FISH OIL
     Route: 048
  8. AVAPRO [Concomitant]
     Active Substance: IRBESARTAN
     Route: 048
  9. COREG [Concomitant]
     Active Substance: CARVEDILOL
     Route: 048
  10. LETAIRIS [Suspect]
     Active Substance: AMBRISENTAN
     Indication: PULMONARY ARTERIAL HYPERTENSION
     Route: 048
     Dates: start: 20070608, end: 200709

REACTIONS (2)
  - Dyspnoea [Recovered/Resolved]
  - Joint swelling [Recovered/Resolved]
